FAERS Safety Report 19081394 (Version 1)
Quarter: 2021Q2

REPORT INFORMATION
  Report Type: Spontaneous
  Country: CA (occurrence: CA)
  Receive Date: 20210401
  Receipt Date: 20210401
  Transmission Date: 20210717
  Serious: Yes (Other)
  Sender: FDA-Public Use
  Company Number: CA-BAUSCH-BL-2021-010424

PATIENT
  Sex: Female

DRUGS (11)
  1. NIFEDIPINE. [Suspect]
     Active Substance: NIFEDIPINE
     Indication: HYPERTENSION
     Route: 048
  2. NIFEDIPINE. [Suspect]
     Active Substance: NIFEDIPINE
     Indication: HYPERTENSION
     Dosage: NOT SPECIFIED
     Route: 023
  3. METHYLDOPA. [Suspect]
     Active Substance: METHYLDOPA
     Indication: HYPERTENSION
     Route: 048
  4. NIFEDIPINE. [Suspect]
     Active Substance: NIFEDIPINE
     Route: 065
  5. ASA [Suspect]
     Active Substance: ASPIRIN
     Dosage: NOT SPECIFIED
     Route: 022
  6. DICLECTIN [Suspect]
     Active Substance: DOXYLAMINE SUCCINATE\PYRIDOXINE HYDROCHLORIDE
     Indication: PROPHYLAXIS
     Route: 048
  7. METFORMIN [Suspect]
     Active Substance: METFORMIN HYDROCHLORIDE
     Indication: TYPE 2 DIABETES MELLITUS
     Route: 065
  8. ASA [Suspect]
     Active Substance: ASPIRIN
     Indication: PRODUCT USED FOR UNKNOWN INDICATION
     Dosage: NOT SPECIFIED
     Route: 065
  9. INSULIN [Suspect]
     Active Substance: INSULIN NOS
     Indication: TYPE 2 DIABETES MELLITUS
     Dosage: NOT SPECIFIED
     Route: 048
  10. SILDENAFIL. [Suspect]
     Active Substance: SILDENAFIL
     Indication: FOETAL GROWTH RESTRICTION
     Route: 048
  11. CHLORHEXIDINE GLUCONATE ORAL RINSE [Suspect]
     Active Substance: CHLORHEXIDINE GLUCONATE
     Indication: GINGIVAL HYPERTROPHY
     Route: 065

REACTIONS (2)
  - Premature delivery [Unknown]
  - Off label use [Unknown]
